FAERS Safety Report 9457846 (Version 1)
Quarter: 2013Q3

REPORT INFORMATION
  Report Type: Spontaneous
  Country: DE (occurrence: None)
  Receive Date: 20130812
  Receipt Date: 20130812
  Transmission Date: 20140515
  Serious: Yes (Life-Threatening, Hospitalization)
  Sender: FDA-Public Use
  Company Number: GER/GER/13/0033890

PATIENT
  Age: 34 Year
  Sex: Male
  Weight: 96 kg

DRUGS (2)
  1. IBUPROFEN (IBUPROFEN) [Suspect]
     Indication: PRODUCT USED FOR UNKNOWN INDICATION
     Dosage: 3 IN 1 D
     Route: 048
  2. NOVALGIN TROPFEN [Suspect]
     Dosage: AT LEAT 4-6 TIMES
     Route: 048

REACTIONS (2)
  - Agranulocytosis [None]
  - Pyrexia [None]
